FAERS Safety Report 12604008 (Version 2)
Quarter: 2016Q3

REPORT INFORMATION
  Report Type: Spontaneous
  Country: JP (occurrence: JP)
  Receive Date: 20160728
  Receipt Date: 20160805
  Transmission Date: 20161109
  Serious: Yes (Death, Other)
  Sender: FDA-Public Use
  Company Number: JP-TAKEDA-2016MPI006744

PATIENT

DRUGS (1)
  1. VELCADE [Suspect]
     Active Substance: BORTEZOMIB
     Indication: PLASMA CELL MYELOMA
     Dosage: UNK
     Route: 065

REACTIONS (8)
  - Condition aggravated [Fatal]
  - Platelet count decreased [Unknown]
  - Haemorrhagic cerebral infarction [Fatal]
  - Interstitial lung disease [Fatal]
  - Pneumonia [Fatal]
  - Herpes zoster [Unknown]
  - Sepsis [Fatal]
  - Neuropathy peripheral [Unknown]
